FAERS Safety Report 9525672 (Version 1)
Quarter: 2013Q1

REPORT INFORMATION
  Report Type: Spontaneous
  Country: CA (occurrence: None)
  Receive Date: 20130314
  Receipt Date: 20130314
  Transmission Date: 20140127
  Serious: Yes (Other)
  Sender: FDA-Public Use
  Company Number: 1302USA000093

PATIENT
  Age: 57 Year
  Sex: Male

DRUGS (2)
  1. VICTRELIS (BOCEPREVIR) CAPSULE [Suspect]
     Indication: HEPATITIS C
     Dosage: UNK, TID, ORAL
     Route: 048
     Dates: start: 201210, end: 201212
  2. PEGETRON (RIBAVIRIN (+) PEGINTERFERON ALFA-2B) [Concomitant]

REACTIONS (1)
  - Rash [None]
